FAERS Safety Report 14667096 (Version 1)
Quarter: 2018Q1

REPORT INFORMATION
  Report Type: Spontaneous
  Country: CZ (occurrence: CZ)
  Receive Date: 20180322
  Receipt Date: 20180322
  Transmission Date: 20180509
  Serious: Yes (Other)
  Sender: FDA-Public Use
  Company Number: CZ-CIPLA LTD.-2018CZ11807

PATIENT

DRUGS (3)
  1. VENTOLIN [Concomitant]
     Active Substance: ALBUTEROL SULFATE
     Indication: PRODUCT USED FOR UNKNOWN INDICATION
     Dosage: UNK, IN CASE OF DIFFICULTY, USED TWICE IN TOTAL ()
     Route: 065
     Dates: start: 20171023, end: 20171029
  2. TARDYFERON [Concomitant]
     Active Substance: FERROUS SULFATE
     Indication: PRODUCT USED FOR UNKNOWN INDICATION
     Dosage: UNK, AT THE TIME OF MENSTRUATION ()
     Route: 065
     Dates: start: 20171002, end: 20171010
  3. BUDESONIDE. [Suspect]
     Active Substance: BUDESONIDE
     Indication: PRODUCT USED FOR UNKNOWN INDICATION
     Dosage: 200 MG, UNK, 0-0-2, 2 BREATHS IN THE EVENING
     Route: 065
     Dates: start: 20171023, end: 20171031

REACTIONS (6)
  - Dry mouth [Recovered/Resolved]
  - Tongue discomfort [Recovered/Resolved]
  - Oral mucosal erythema [Recovered/Resolved]
  - Tongue oedema [Recovered/Resolved]
  - Dysgeusia [Recovered/Resolved]
  - Lip swelling [Recovered/Resolved]

NARRATIVE: CASE EVENT DATE: 20171029
